FAERS Safety Report 8816747 (Version 1)
Quarter: 2012Q4

REPORT INFORMATION
  Report Type: Spontaneous
  Country: US (occurrence: None)
  Receive Date: 20121001
  Receipt Date: 20121001
  Transmission Date: 20130627
  Serious: Yes (Other)
  Sender: FDA-Public Use
  Company Number: JPI-P-025270

PATIENT
  Age: 55 Year
  Sex: Male

DRUGS (10)
  1. XYREM [Suspect]
     Indication: NARCOLEPSY
     Dosage: 6 GM (3 GM, 2 IN 1 D), ORAL
     Route: 048
     Dates: start: 20111220
  2. XYREM [Suspect]
     Indication: NARCOLEPSY
     Dosage: 7.5 gm (3.75 gm, 2 in 1 D), oral
     Route: 048
     Dates: start: 20120425
  3. NIACIN [Concomitant]
  4. CABERGOLINE [Concomitant]
  5. LISINOPRIL [Concomitant]
  6. FENOFIBRIC ACID [Concomitant]
  7. AMPHETAMINE, DEXTROAMPHETAMINE MIXED SALTS PSYCHOSTIMULANTS AND NOOTROPICS [Concomitant]
  8. CITALOPRAM [Concomitant]
  9. SIMVASTATIN [Concomitant]
  10. SINEMET [Concomitant]

REACTIONS (1)
  - Coronary artery disease [None]
